FAERS Safety Report 6842879-X (Version None)
Quarter: 2010Q3

REPORT INFORMATION
  Report Type: 
  Country: None (occurrence: None)
  Receive Date: 20100714
  Receipt Date: 20070809
  Transmission Date: 20110219
  Serious: No
  Sender: FDA-Public Use
  Company Number: US-PFIZER INC-2007067177

PATIENT
  Sex: Female

DRUGS (5)
  1. CHANTIX [Suspect]
     Indication: SMOKING CESSATION THERAPY
     Dates: start: 20070709
  2. PROAIR HFA [Concomitant]
  3. LAMICTAL [Concomitant]
  4. CLONAZEPAM [Concomitant]
  5. PAXIL [Concomitant]

REACTIONS (2)
  - DRY MOUTH [None]
  - TREMOR [None]
